FAERS Safety Report 23830569 (Version 1)
Quarter: 2024Q2

REPORT INFORMATION
  Report Type: Report from Study
  Country: US (occurrence: US)
  Receive Date: 20240508
  Receipt Date: 20240508
  Transmission Date: 20240716
  Serious: Yes (Hospitalization)
  Sender: FDA-Public Use
  Company Number: US-ABBVIE-5747541

PATIENT
  Sex: Male

DRUGS (2)
  1. VENCLEXTA [Suspect]
     Active Substance: VENETOCLAX
     Indication: B-cell small lymphocytic lymphoma
     Dosage: 1 TABLET BY MOUTH DAILY FOR 1 WEEK THEN 2 TABLETS BY MOUTH DAILY FOR 1 WEEK?FORM STRENGTH: 50 MG
     Route: 048
  2. VENCLEXTA [Suspect]
     Active Substance: VENETOCLAX
     Indication: B-cell small lymphocytic lymphoma
     Dosage: 1 TABLET BY MOUTH DAILY FOR 1 WEEK THEN 2 TABLETS BY MOUTH DAILY FOR 1 WEEK?FORM STRENGTH: 50 MG
     Route: 048

REACTIONS (1)
  - Fall [Unknown]
